FAERS Safety Report 8851944 (Version 2)
Quarter: 2012Q4

REPORT INFORMATION
  Report Type: 
  Country: IT (occurrence: IT)
  Receive Date: 20121022
  Receipt Date: 20121030
  Transmission Date: 20130627
  Serious: Yes (Hospitalization)
  Sender: FDA-Public Use
  Company Number: IT-ELI_LILLY_AND_COMPANY-IT201210002942

PATIENT
  Age: 50 Year
  Sex: Male

DRUGS (8)
  1. XERISTAR [Suspect]
     Dosage: 420 mg, UNK
     Dates: start: 20120928, end: 20120928
  2. ZYPREXA [Concomitant]
  3. AMLODIPINE BESYLATE [Concomitant]
     Dosage: 150 mg, single
     Dates: start: 20120928, end: 20120928
  4. ZOFENOPRIL [Concomitant]
     Dosage: 600 mg, single
     Dates: start: 20120928, end: 20120928
  5. VENLAFAXINE HYDROCHLORIDE [Concomitant]
     Dosage: 525 mg, single
     Dates: start: 20120928, end: 20120928
  6. SEREPRILE [Concomitant]
  7. SEROPRAM [Concomitant]
  8. WELLBUTRIN [Concomitant]

REACTIONS (1)
  - Intentional overdose [Unknown]
